FAERS Safety Report 4431901-6 (Version None)
Quarter: 2004Q3

REPORT INFORMATION
  Report Type: 
  Country: None (occurrence: None)
  Receive Date: 20040818
  Receipt Date: 20040806
  Transmission Date: 20050211
  Serious: Yes (Other)
  Sender: FDA-Public Use
  Company Number: HQWYE189911AUG04

PATIENT
  Sex: Female

DRUGS (4)
  1. EFFEXOR XR [Suspect]
     Dosage: SEE IMAGE
     Route: 065
     Dates: start: 20030101, end: 20040701
  2. EFFEXOR XR [Suspect]
     Dosage: SEE IMAGE
     Route: 065
     Dates: start: 20040701, end: 20040701
  3. EFFEXOR XR [Suspect]
     Dosage: SEE IMAGE
     Route: 065
     Dates: start: 20040701, end: 20040801
  4. EFFEXOR XR [Suspect]
     Dosage: SEE IMAGE
     Route: 065
     Dates: start: 20040801

REACTIONS (2)
  - DRUG DEPENDENCE [None]
  - DRUG WITHDRAWAL SYNDROME [None]
